FAERS Safety Report 9825325 (Version 2)
Quarter: 2014Q1

REPORT INFORMATION
  Report Type: Spontaneous
  Country: US (occurrence: US)
  Receive Date: 20140117
  Receipt Date: 20140306
  Transmission Date: 20141002
  Serious: Yes (Other)
  Sender: FDA-Public Use
  Company Number: US-TEVA-456884USA

PATIENT
  Age: 38 Year
  Sex: Female
  Weight: 90.8 kg

DRUGS (1)
  1. COPAXONE [Suspect]
     Indication: MULTIPLE SCLEROSIS
     Dates: start: 2004

REACTIONS (1)
  - Multiple sclerosis relapse [Recovered/Resolved]
